FAERS Safety Report 16687066 (Version 7)
Quarter: 2019Q4

REPORT INFORMATION
  Report Type: Report from Study
  Country: None (occurrence: US)
  Receive Date: 20190809
  Receipt Date: 20191223
  Transmission Date: 20200122
  Serious: Yes (Other)
  Sender: FDA-Public Use
  Company Number: US-ABBVIE-19K-163-2879601-00

PATIENT
  Age: 60 Year
  Sex: Female
  Weight: 97.61 kg

DRUGS (2)
  1. HUMIRA [Suspect]
     Active Substance: ADALIMUMAB
     Route: 058
     Dates: start: 2019
  2. HUMIRA [Suspect]
     Active Substance: ADALIMUMAB
     Indication: RHEUMATOID ARTHRITIS
     Route: 058
     Dates: start: 20190530, end: 2019

REACTIONS (22)
  - Upper respiratory tract congestion [Unknown]
  - Arthralgia [Unknown]
  - Faecaloma [Unknown]
  - Fatigue [Unknown]
  - Road traffic accident [Unknown]
  - Large intestine polyp [Unknown]
  - Dyskinesia oesophageal [Unknown]
  - Joint swelling [Unknown]
  - Anxiety [Unknown]
  - Sensitivity to weather change [Unknown]
  - Chronic obstructive pulmonary disease [Unknown]
  - Diverticulitis [Unknown]
  - Hiatus hernia [Unknown]
  - Pharyngo-oesophageal diverticulum [Unknown]
  - Respiratory tract congestion [Unknown]
  - Laryngitis [Unknown]
  - Colonoscopy abnormal [Unknown]
  - Migraine [Unknown]
  - Visual impairment [Unknown]
  - Joint stiffness [Unknown]
  - Small intestine carcinoma [Unknown]
  - Laryngitis [Recovered/Resolved]

NARRATIVE: CASE EVENT DATE: 2019
